FAERS Safety Report 4284281-3 (Version None)
Quarter: 2004Q1

REPORT INFORMATION
  Report Type: 
  Country: None (occurrence: None)
  Receive Date: 20040202
  Receipt Date: 20040202
  Transmission Date: 20041129
  Serious: Yes (Other)
  Sender: FDA-Public Use
  Company Number: None

PATIENT
  Sex: Female
  Weight: 22.2263 kg

DRUGS (1)
  1. NUTROPIN AQ [Suspect]
     Dosage: 0.9 MG QD SQ
     Dates: start: 20040115, end: 20040120

REACTIONS (3)
  - HEADACHE [None]
  - NAUSEA [None]
  - VOMITING [None]
